FAERS Safety Report 7798387-5 (Version None)
Quarter: 2011Q4

REPORT INFORMATION
  Report Type: 
  Country: None (occurrence: None)
  Receive Date: 20111005
  Receipt Date: 20110926
  Transmission Date: 20120403
  Serious: Yes (Other)
  Sender: FDA-Public Use
  Company Number: FR-ASTRAZENECA-2011SE58269

PATIENT
  Age: 29 Year
  Sex: Female

DRUGS (5)
  1. ACETAMINOPHEN AND TRAMADOL HCL [Suspect]
     Indication: CROHN'S DISEASE
     Dosage: 37.5 MG / 325 MG
     Route: 048
     Dates: start: 20110902, end: 20110912
  2. POTASSIUM CHLORIDE [Concomitant]
     Route: 048
     Dates: start: 20110902
  3. PANTOPRAZOLE [Suspect]
     Indication: CROHN'S DISEASE
     Route: 048
     Dates: start: 20110902, end: 20110912
  4. TRIMEBUTINE [Suspect]
     Indication: CROHN'S DISEASE
     Route: 048
     Dates: start: 20110902, end: 20110912
  5. ENTOCORT EC [Suspect]
     Indication: CROHN'S DISEASE
     Route: 048
     Dates: start: 20110902, end: 20110912

REACTIONS (3)
  - MYOCLONUS [None]
  - VISUAL IMPAIRMENT [None]
  - HYPERREFLEXIA [None]
